FAERS Safety Report 4280710-X (Version None)
Quarter: 2004Q1

REPORT INFORMATION
  Report Type: 
  Country: None (occurrence: None)
  Receive Date: 20040127
  Receipt Date: 20040120
  Transmission Date: 20041129
  Serious: Yes (Other)
  Sender: FDA-Public Use
  Company Number: 200326692BWH

PATIENT

DRUGS (1)
  1. AVELOX [Suspect]
     Dosage: NI

REACTIONS (1)
  - HEPATIC FAILURE [None]
